FAERS Safety Report 9550640 (Version 6)
Quarter: 2019Q1

REPORT INFORMATION
  Report Type: Report from Study
  Country: US (occurrence: US)
  Receive Date: 20130924
  Receipt Date: 20190329
  Transmission Date: 20190418
  Serious: Yes (Death, Disabling, Other)
  Sender: FDA-Public Use
  Company Number: US-SANOFI-AVENTIS-2013SA042762

PATIENT
  Age: 63 Year
  Sex: Female

DRUGS (1)
  1. TERIFLUNOMIDE. [Suspect]
     Active Substance: TERIFLUNOMIDE
     Indication: MULTIPLE SCLEROSIS
     Dosage: 14 MG,QD
     Route: 048
     Dates: start: 20130225, end: 20140629

REACTIONS (12)
  - Pneumonia [Unknown]
  - Depression [Unknown]
  - Loss of consciousness [Not Recovered/Not Resolved]
  - Drug ineffective [Unknown]
  - Multiple sclerosis relapse [Unknown]
  - Dehydration [Not Recovered/Not Resolved]
  - Death [Fatal]
  - Muscular weakness [Unknown]
  - Alopecia [Not Recovered/Not Resolved]
  - Hypoaesthesia [Not Recovered/Not Resolved]
  - Gait inability [Not Recovered/Not Resolved]
  - Tremor [Unknown]

NARRATIVE: CASE EVENT DATE: 2017
